FAERS Safety Report 21527195 (Version 1)
Quarter: 2022Q4

REPORT INFORMATION
  Report Type: Report from Study
  Country: US (occurrence: US)
  Receive Date: 20221031
  Receipt Date: 20221031
  Transmission Date: 20230112
  Serious: No
  Sender: FDA-Public Use
  Company Number: US-ABBVIE-4179898

PATIENT
  Sex: Male

DRUGS (2)
  1. IMBRUVICA [Suspect]
     Active Substance: IBRUTINIB
     Indication: Waldenstrom^s macroglobulinaemia
     Route: 048
     Dates: start: 20150914, end: 20221025
  2. BRUKINSA [Concomitant]
     Active Substance: ZANUBRUTINIB
     Indication: Product used for unknown indication

REACTIONS (1)
  - Adverse drug reaction [Unknown]
